FAERS Safety Report 7301547-0 (Version None)
Quarter: 2011Q1

REPORT INFORMATION
  Report Type: 
  Country: None (occurrence: None)
  Receive Date: 20110218
  Receipt Date: 20110215
  Transmission Date: 20110831
  Serious: Yes (Death)
  Sender: FDA-Public Use
  Company Number: US-PFIZER INC-2010096654

PATIENT
  Sex: Female
  Weight: 71.655 kg

DRUGS (18)
  1. LASIX [Concomitant]
     Dosage: UNK
  2. PERCOCET [Concomitant]
     Dosage: UNK
  3. FLONASE [Concomitant]
     Dosage: UNK
  4. POTASSIUM CHLORIDE [Concomitant]
     Dosage: UNK
  5. REVATIO [Suspect]
     Indication: PULMONARY HYPERTENSION
     Dosage: 20 MG, 3X/DAY
     Dates: start: 20081101, end: 20100501
  6. REVATIO [Suspect]
     Indication: PULMONARY ARTERIAL HYPERTENSION
  7. SPIRONOLACTONE [Concomitant]
     Dosage: UNK
  8. XOPENEX [Concomitant]
     Dosage: UNK
  9. SODIUM CHLORIDE [Concomitant]
     Dosage: UNK
  10. PROAIR HFA [Concomitant]
     Dosage: UNK
  11. WARFARIN [Concomitant]
     Dosage: UNK
  12. LYRICA [Concomitant]
     Dosage: UNK
  13. PLAVIX [Concomitant]
     Dosage: UNK
  14. TENORMIN [Concomitant]
     Dosage: UNK
  15. VALSARTAN [Concomitant]
     Dosage: UNK
  16. PROPYLTHIOURACIL [Concomitant]
     Dosage: UNK
  17. ASA [Concomitant]
     Dosage: UNK
  18. CALCIUM [Concomitant]
     Dosage: UNK

REACTIONS (9)
  - ACUTE RESPIRATORY FAILURE [None]
  - CHOLECYSTITIS [None]
  - ALANINE AMINOTRANSFERASE INCREASED [None]
  - TRANSAMINASES INCREASED [None]
  - COAGULOPATHY [None]
  - PULMONARY HYPERTENSION [None]
  - ASCITES [None]
  - BLOOD CREATININE INCREASED [None]
  - ASPARTATE AMINOTRANSFERASE INCREASED [None]
